FAERS Safety Report 16875593 (Version 1)
Quarter: 2019Q4

REPORT INFORMATION
  Report Type: Spontaneous
  Country: US (occurrence: US)
  Receive Date: 20190807
  Receipt Date: 20190807
  Transmission Date: 20200122
  Serious: Yes (Hospitalization)
  Sender: FDA-Public Use
  Company Number: None

PATIENT
  Age: 75 Year
  Sex: Female
  Weight: 56.7 kg

DRUGS (14)
  1. MELATONIN 3MG [Concomitant]
  2. MAGNESIUM-OXIDE 500MG [Concomitant]
  3. RESTASIS [Concomitant]
     Active Substance: CYCLOSPORINE
  4. NUPLAZID [Suspect]
     Active Substance: PIMAVANSERIN TARTRATE
     Indication: HALLUCINATION
     Dosage: ??          QUANTITY:1 CAPSULE;?
     Route: 048
     Dates: start: 20190627, end: 20190629
  5. GABAPENTIN 100MG [Concomitant]
     Active Substance: GABAPENTIN
  6. SINEMET [Concomitant]
     Active Substance: CARBIDOPA\LEVODOPA
  7. ASPIRIN 81MG [Concomitant]
     Active Substance: ASPIRIN
  8. CALCIUM 600 +D3 [Concomitant]
  9. CRANBERRY 400MG [Concomitant]
  10. TRAMADOL. [Concomitant]
     Active Substance: TRAMADOL
  11. CITALOPRAM [Concomitant]
     Active Substance: CITALOPRAM HYDROBROMIDE
  12. FLUTICASONE PROPIONATE. [Concomitant]
     Active Substance: FLUTICASONE PROPIONATE
  13. LIPITOR [Concomitant]
     Active Substance: ATORVASTATIN CALCIUM
  14. PANTOPRAZOLE [Concomitant]
     Active Substance: PANTOPRAZOLE

REACTIONS (2)
  - Unresponsive to stimuli [None]
  - Product use issue [None]

NARRATIVE: CASE EVENT DATE: 20190627
